FAERS Safety Report 25478198 (Version 2)
Quarter: 2025Q3

REPORT INFORMATION
  Report Type: Report from Study
  Country: US (occurrence: US)
  Receive Date: 20250625
  Receipt Date: 20250725
  Transmission Date: 20251021
  Serious: Yes (Other)
  Sender: ALEXION PHARMACEUTICALS
  Company Number: US-AstraZeneca-CH-00897306A

PATIENT
  Sex: Male

DRUGS (1)
  1. SOLIRIS [Suspect]
     Active Substance: ECULIZUMAB
     Indication: Paroxysmal nocturnal haemoglobinuria
     Route: 065

REACTIONS (6)
  - Lethargy [Unknown]
  - Dyspnoea [Unknown]
  - Vocal cord disorder [Unknown]
  - Illness [Unknown]
  - Product dose omission issue [Unknown]
  - General physical health deterioration [Unknown]
